FAERS Safety Report 8463915-3 (Version None)
Quarter: 2012Q2

REPORT INFORMATION
  Report Type: 
  Country: None (occurrence: None)
  Receive Date: 20120625
  Receipt Date: 20120619
  Transmission Date: 20120825
  Serious: Yes (Hospitalization, Other)
  Sender: FDA-Public Use
  Company Number: AU-ELI_LILLY_AND_COMPANY-AU201206005842

PATIENT
  Sex: Female

DRUGS (2)
  1. ENOXAPARIN SODIUM [Concomitant]
  2. FORTEO [Suspect]
     Indication: OSTEOPOROSIS
     Dosage: 20 UG, QD
     Route: 065
     Dates: start: 20110607

REACTIONS (4)
  - GASTROINTESTINAL CARCINOMA [None]
  - ADVERSE DRUG REACTION [None]
  - NECROSIS [None]
  - ILEUS PARALYTIC [None]
